FAERS Safety Report 7070138-1 (Version None)
Quarter: 2010Q4

REPORT INFORMATION
  Report Type: 
  Country: None (occurrence: None)
  Receive Date: 20101028
  Receipt Date: 20100824
  Transmission Date: 20110411
  Serious: No
  Sender: FDA-Public Use
  Company Number: US-WYE-H17146710

PATIENT
  Sex: Female

DRUGS (1)
  1. ADVIL [Suspect]

REACTIONS (3)
  - GLOSSODYNIA [None]
  - HYPOAESTHESIA ORAL [None]
  - WRONG TECHNIQUE IN DRUG USAGE PROCESS [None]
